FAERS Safety Report 18548849 (Version 5)
Quarter: 2021Q4

REPORT INFORMATION
  Report Type: Report from Study
  Country: NL (occurrence: NL)
  Receive Date: 20201125
  Receipt Date: 20211221
  Transmission Date: 20220303
  Serious: Yes (Other)
  Sender: FDA-Public Use
  Company Number: NL-ABBVIE-19S-114-2667651-00

PATIENT
  Age: 62 Year
  Sex: Female

DRUGS (8)
  1. CARBIDOPA\LEVODOPA [Suspect]
     Active Substance: CARBIDOPA\LEVODOPA
     Indication: Parkinson^s disease
     Dosage: ED 1.8 ML AFTERNOON, ED 2.3 ML?MD: 5.2 ML, CD: 1.9 ML/HR, ED: 3.0ML
     Route: 050
     Dates: start: 20131003
  2. CARBIDOPA\LEVODOPA [Suspect]
     Active Substance: CARBIDOPA\LEVODOPA
     Dosage: MD: 5.2 ML, CD: 2.1-2.6 ML/HR, ED: 3.0ML REMAINS AT 16 HOURS
     Route: 050
  3. CARBIDOPA\LEVODOPA [Suspect]
     Active Substance: CARBIDOPA\LEVODOPA
     Dosage: MD 5.2, CD 1.9, ED 3
     Route: 050
  4. CARBIDOPA\LEVODOPA [Suspect]
     Active Substance: CARBIDOPA\LEVODOPA
     Dosage: MD:5.2,CD: 2.1(1ST),2.3(LESS ACTIVE DAY),2.5(ACTIVITY),2.6(WORKING),ED: 3.0
     Route: 050
  5. CARBIDOPA\LEVODOPA [Suspect]
     Active Substance: CARBIDOPA\LEVODOPA
     Dosage: MD: 5.2 ML, CD: 1.9 ML/HR, ED: 3.0ML 0 REMAINS AT 16 HOURS
     Route: 050
  6. CARBIDOPA\LEVODOPA [Suspect]
     Active Substance: CARBIDOPA\LEVODOPA
     Dosage: MD: 5.2 ML, CD: 2.1-2.6 ML/HR, ED: 3.0ML REMAINS AT 16 HOURS
     Route: 050
  7. CARBIDOPA\LEVODOPA [Suspect]
     Active Substance: CARBIDOPA\LEVODOPA
     Dosage: MD: 5.6 ML, CD: 2.6 ML/HR, ED: 4.0 ML  REMAINS AT 16 HOURS
     Route: 050
  8. CARBIDOPA\LEVODOPA [Suspect]
     Active Substance: CARBIDOPA\LEVODOPA
     Dosage: MD 9.0 ML CD 2.6 ML/H ED 4.5 ML REMAINS AT 16 HOURS
     Route: 050

REACTIONS (53)
  - Hip fracture [Recovered/Resolved with Sequelae]
  - Incorrect dose administered [Unknown]
  - Nocturia [Not Recovered/Not Resolved]
  - Pollakiuria [Not Recovered/Not Resolved]
  - Memory impairment [Recovered/Resolved]
  - Pain in extremity [Not Recovered/Not Resolved]
  - Muscle rigidity [Not Recovered/Not Resolved]
  - Infrequent bowel movements [Recovered/Resolved]
  - Tension [Not Recovered/Not Resolved]
  - On and off phenomenon [Not Recovered/Not Resolved]
  - Drug level decreased [Unknown]
  - Abnormal faeces [Not Recovered/Not Resolved]
  - Middle insomnia [Not Recovered/Not Resolved]
  - Fatigue [Unknown]
  - Fall [Not Recovered/Not Resolved]
  - Tremor [Not Recovered/Not Resolved]
  - Hyperkinesia [Recovered/Resolved]
  - Dyskinesia [Recovered/Resolved]
  - Hypotension [Not Recovered/Not Resolved]
  - Hyperkinesia [Not Recovered/Not Resolved]
  - Drug ineffective [Recovered/Resolved]
  - On and off phenomenon [Recovered/Resolved]
  - Device effect incomplete [Not Recovered/Not Resolved]
  - Dizziness [Not Recovered/Not Resolved]
  - Dyskinesia [Not Recovered/Not Resolved]
  - Anxiety [Not Recovered/Not Resolved]
  - Freezing phenomenon [Not Recovered/Not Resolved]
  - Bradykinesia [Not Recovered/Not Resolved]
  - Stoma site erythema [Recovered/Resolved]
  - Unevaluable event [Not Recovered/Not Resolved]
  - Hypokinesia [Not Recovered/Not Resolved]
  - Sleep disorder [Unknown]
  - Abnormal dreams [Unknown]
  - Dyskinesia [Not Recovered/Not Resolved]
  - Decreased appetite [Recovered/Resolved]
  - Retching [Not Recovered/Not Resolved]
  - Weight decreased [Recovered/Resolved]
  - Somnolence [Not Recovered/Not Resolved]
  - Initial insomnia [Not Recovered/Not Resolved]
  - Insomnia [Not Recovered/Not Resolved]
  - Stoma site erythema [Recovering/Resolving]
  - Muscle rigidity [Unknown]
  - Intentional product misuse [Unknown]
  - Stoma site discharge [Recovered/Resolved]
  - Gastric disorder [Not Recovered/Not Resolved]
  - Fear of disease [Not Recovered/Not Resolved]
  - Psychomotor skills impaired [Recovered/Resolved]
  - Gait inability [Recovered/Resolved with Sequelae]
  - Cognitive disorder [Recovered/Resolved]
  - Mobility decreased [Not Recovered/Not Resolved]
  - Stoma site discharge [Recovered/Resolved]
  - Stoma site erythema [Recovered/Resolved]
  - Device occlusion [Not Recovered/Not Resolved]

NARRATIVE: CASE EVENT DATE: 20190225
